FAERS Safety Report 17020817 (Version 1)
Quarter: 2019Q4

REPORT INFORMATION
  Report Type: Spontaneous
  Country: ZA (occurrence: ZA)
  Receive Date: 20191112
  Receipt Date: 20191112
  Transmission Date: 20200122
  Serious: Yes (Life-Threatening, Other)
  Sender: FDA-Public Use
  Company Number: ZA-JNJFOC-20191106054

PATIENT
  Age: 39 Year
  Sex: Male

DRUGS (46)
  1. TERIZIDONE [Suspect]
     Active Substance: TERIZIDONE
     Dosage: 250/500 MG
     Route: 048
     Dates: start: 20190306, end: 20190519
  2. PYRAZINAMIDE. [Suspect]
     Active Substance: PYRAZINAMIDE
     Indication: TUBERCULOSIS
     Route: 048
     Dates: start: 20181215, end: 20190221
  3. AUGMENTIN [Suspect]
     Active Substance: AMOXICILLIN\CLAVULANATE POTASSIUM
     Route: 048
     Dates: start: 20190306
  4. DELAMANID [Suspect]
     Active Substance: DELAMANID
     Indication: TUBERCULOSIS
     Route: 048
     Dates: start: 20190107, end: 20190221
  5. LINEZOLID. [Suspect]
     Active Substance: LINEZOLID
     Route: 048
     Dates: start: 20190306, end: 2019
  6. ISONIAZID. [Suspect]
     Active Substance: ISONIAZID
     Route: 048
     Dates: start: 20190306
  7. FOLIC ACID. [Concomitant]
     Active Substance: FOLIC ACID
  8. ABACAVIR SULFATE W/LAMIVUDINE [Concomitant]
     Active Substance: ABACAVIR\LAMIVUDINE
  9. MAXOLON [Concomitant]
     Active Substance: METOCLOPRAMIDE HYDROCHLORIDE
  10. DELAMANID [Suspect]
     Active Substance: DELAMANID
     Route: 048
     Dates: start: 20190306, end: 20190519
  11. LEVOFLOXACIN. [Suspect]
     Active Substance: LEVOFLOXACIN
     Route: 048
     Dates: start: 20190701
  12. PYRAZINAMIDE. [Suspect]
     Active Substance: PYRAZINAMIDE
     Route: 048
     Dates: start: 20190306, end: 2019
  13. AUGMENTIN [Suspect]
     Active Substance: AMOXICILLIN\CLAVULANATE POTASSIUM
     Indication: TUBERCULOSIS
     Route: 048
     Dates: start: 20181221, end: 20190221
  14. LASIX [Concomitant]
     Active Substance: FUROSEMIDE
  15. BEDAQUILINE [Suspect]
     Active Substance: BEDAQUILINE
     Indication: TUBERCULOSIS
     Route: 048
     Dates: start: 20181018, end: 20190221
  16. TERIZIDONE [Suspect]
     Active Substance: TERIZIDONE
     Indication: TUBERCULOSIS
     Dosage: 250/500 MG
     Route: 048
     Dates: start: 20181215, end: 20190221
  17. PARA-AMINOSALICYLIC ACID [Suspect]
     Active Substance: AMINOSALICYLIC ACID
     Indication: TUBERCULOSIS
     Route: 048
     Dates: start: 20181215, end: 20190221
  18. PYRAZINAMIDE. [Suspect]
     Active Substance: PYRAZINAMIDE
     Route: 048
     Dates: start: 20190701
  19. LEVOFLOXACIN. [Suspect]
     Active Substance: LEVOFLOXACIN
     Indication: TUBERCULOSIS
     Route: 048
     Dates: start: 20181215, end: 20190221
  20. LEVOFLOXACIN. [Suspect]
     Active Substance: LEVOFLOXACIN
     Route: 048
     Dates: start: 20190306, end: 20190519
  21. LINEZOLID. [Suspect]
     Active Substance: LINEZOLID
     Indication: TUBERCULOSIS
     Route: 048
     Dates: start: 20181215, end: 20190221
  22. LINEZOLID. [Suspect]
     Active Substance: LINEZOLID
     Route: 048
     Dates: start: 20190701
  23. PARA-AMINOSALICYLIC ACID [Suspect]
     Active Substance: AMINOSALICYLIC ACID
     Route: 048
     Dates: start: 20190306, end: 20190519
  24. CLOFAZIMINE [Suspect]
     Active Substance: CLOFAZIMINE
     Indication: TUBERCULOSIS
     Route: 048
     Dates: start: 20181215, end: 20190221
  25. CLOFAZIMINE [Suspect]
     Active Substance: CLOFAZIMINE
     Route: 048
     Dates: start: 20190306, end: 20190519
  26. AUGMENTIN [Suspect]
     Active Substance: AMOXICILLIN\CLAVULANATE POTASSIUM
     Route: 048
     Dates: start: 20190701
  27. ALUVIA [Concomitant]
     Active Substance: LOPINAVIR\RITONAVIR
  28. TEGRETOL [Concomitant]
     Active Substance: CARBAMAZEPINE
  29. BEDAQUILINE [Suspect]
     Active Substance: BEDAQUILINE
     Route: 048
     Dates: start: 20190701
  30. ISONIAZID. [Suspect]
     Active Substance: ISONIAZID
     Indication: TUBERCULOSIS
     Route: 048
     Dates: start: 20181215, end: 20190221
  31. CLOFAZIMINE [Suspect]
     Active Substance: CLOFAZIMINE
     Route: 048
     Dates: start: 20190701
  32. ERTAPENEM. [Suspect]
     Active Substance: ERTAPENEM SODIUM
     Indication: TUBERCULOSIS
     Route: 048
     Dates: start: 20181221, end: 20190221
  33. PYRIDOXINE [Concomitant]
     Active Substance: PYRIDOXINE
  34. AMITRIPTYLINE HYDROCHLORIDE. [Concomitant]
     Active Substance: AMITRIPTYLINE HYDROCHLORIDE
  35. CALCIUM GLUCONATE. [Concomitant]
     Active Substance: CALCIUM GLUCONATE
  36. ELTROXIN [Concomitant]
     Active Substance: LEVOTHYROXINE
  37. ISONIAZID. [Suspect]
     Active Substance: ISONIAZID
     Route: 048
     Dates: start: 20190701
  38. PARA-AMINOSALICYLIC ACID [Suspect]
     Active Substance: AMINOSALICYLIC ACID
     Route: 048
     Dates: start: 20190701
  39. NEVIRAPINE. [Concomitant]
     Active Substance: NEVIRAPINE
  40. BACTRIM [Concomitant]
     Active Substance: SULFAMETHOXAZOLE\TRIMETHOPRIM
  41. LYRICA [Concomitant]
     Active Substance: PREGABALIN
  42. BEDAQUILINE [Suspect]
     Active Substance: BEDAQUILINE
     Route: 048
     Dates: start: 20190306
  43. TERIZIDONE [Suspect]
     Active Substance: TERIZIDONE
     Dosage: 250/500 MG
     Route: 048
     Dates: start: 20190701
  44. ERTAPENEM. [Suspect]
     Active Substance: ERTAPENEM SODIUM
     Route: 048
     Dates: start: 20190306
  45. ERTAPENEM. [Suspect]
     Active Substance: ERTAPENEM SODIUM
     Route: 048
     Dates: start: 20190701
  46. TRUVADA [Suspect]
     Active Substance: EMTRICITABINE\TENOFOVIR DISOPROXIL FUMARATE
     Indication: ANTIRETROVIRAL THERAPY
     Route: 065

REACTIONS (4)
  - Off label use [Unknown]
  - Renal impairment [Recovered/Resolved]
  - Meningitis [Unknown]
  - Intentional product use issue [Unknown]

NARRATIVE: CASE EVENT DATE: 20190220
